FAERS Safety Report 9981615 (Version 1)
Quarter: 2014Q1

REPORT INFORMATION
  Report Type: Report from Study
  Country: US (occurrence: US)
  Receive Date: 20140307
  Receipt Date: 20140307
  Transmission Date: 20141002
  Serious: No
  Sender: FDA-Public Use
  Company Number: US-ABBVIE-13P-163-1179875-00

PATIENT
  Sex: Female
  Weight: 81.72 kg

DRUGS (11)
  1. HUMIRA [Suspect]
     Indication: HIDRADENITIS
     Dates: start: 201311
  2. GLIMEPIRIDE [Concomitant]
     Indication: DIABETES MELLITUS
  3. FUROSEMIDE [Concomitant]
     Indication: FLUID RETENTION
  4. METFORMIN [Concomitant]
     Indication: DIABETES MELLITUS
  5. DILTIAZEM [Concomitant]
     Indication: HYPERTENSION
  6. RANITIDINE [Concomitant]
     Indication: GASTROOESOPHAGEAL REFLUX DISEASE
  7. CLONIDINE [Concomitant]
     Indication: HYPERTENSION
  8. LOSARTAN [Concomitant]
     Indication: HYPERTENSION
  9. SIMVASTATIN [Concomitant]
     Indication: BLOOD CHOLESTEROL INCREASED
  10. HYDROCODONE [Concomitant]
     Indication: PAIN
  11. LANTUS [Concomitant]
     Indication: DIABETES MELLITUS

REACTIONS (3)
  - Weight increased [Unknown]
  - Blood glucose increased [Not Recovered/Not Resolved]
  - Cough [Not Recovered/Not Resolved]
